FAERS Safety Report 8933563 (Version 1)
Quarter: 2012Q4

REPORT INFORMATION
  Report Type: 
  Country: US (occurrence: US)
  Receive Date: 20121129
  Receipt Date: 20121129
  Transmission Date: 20130627
  Serious: No
  Sender: FDA-Public Use
  Company Number: US-PFIZER INC-2012299779

PATIENT
  Age: 34 Year
  Sex: Male
  Weight: 74.83 kg

DRUGS (3)
  1. NEURONTIN [Suspect]
     Indication: NERVE PAIN
     Dosage: 100 mg, 3x/day
     Dates: start: 2006
  2. NEURONTIN [Suspect]
     Indication: SEIZURES
     Dosage: 600 mg, 3x/day
  3. LORTAB [Concomitant]
     Dosage: UNK, as needed

REACTIONS (4)
  - Somnolence [Unknown]
  - Drug ineffective [Unknown]
  - Arthralgia [Unknown]
  - Pain in extremity [Unknown]
